FAERS Safety Report 4690647-X (Version None)
Quarter: 2005Q2

REPORT INFORMATION
  Report Type: 
  Country: None (occurrence: None)
  Receive Date: 20050615
  Receipt Date: 20050510
  Transmission Date: 20051028
  Serious: Yes (Hospitalization)
  Sender: FDA-Public Use
  Company Number: DE-GLAXOSMITHKLINE-B0380482A

PATIENT
  Age: 65 Year
  Sex: Female
  Weight: 53 kg

DRUGS (2)
  1. TOPOTECAN [Suspect]
     Dosage: 1MGM2 PER DAY
     Route: 042
     Dates: start: 20050405, end: 20050409
  2. CISPLATIN [Suspect]
     Dosage: 75MGM2 PER DAY
     Route: 042
     Dates: start: 20050409, end: 20050409

REACTIONS (3)
  - FEBRILE INFECTION [None]
  - NEPHROPATHY TOXIC [None]
  - THROMBOCYTOPENIA [None]
